FAERS Safety Report 8912859 (Version 1)
Quarter: 2012Q4

REPORT INFORMATION
  Report Type: 
  Country: JP (occurrence: JP)
  Receive Date: 20121115
  Receipt Date: 20121115
  Transmission Date: 20130627
  Serious: Yes (Hospitalization)
  Sender: FDA-Public Use
  Company Number: JP-ACTELION-A-CH2012-74321

PATIENT
  Age: 62 Year
  Sex: Female
  Weight: 52.6 kg

DRUGS (6)
  1. TRACLEER [Suspect]
     Indication: PULMONARY HYPERTENSION
     Dosage: 125 mg, bid
     Route: 048
     Dates: start: 20120419, end: 20120517
  2. TRACLEER [Suspect]
     Dosage: 62.5 mg, bid
     Route: 048
     Dates: start: 20120322, end: 20120418
  3. WARFARIN POTASSIUM [Concomitant]
  4. CILNIDIPINE [Concomitant]
  5. FUROSEMIDE [Concomitant]
  6. BERAPROST SODIUM [Concomitant]

REACTIONS (3)
  - Hepatic function abnormal [Recovering/Resolving]
  - Aspartate aminotransferase increased [Recovering/Resolving]
  - Alanine aminotransferase increased [Recovering/Resolving]
